FAERS Safety Report 16668603 (Version 1)
Quarter: 2019Q3

REPORT INFORMATION
  Report Type: Spontaneous
  Country: US (occurrence: US)
  Receive Date: 20190805
  Receipt Date: 20190805
  Transmission Date: 20191004
  Serious: No
  Sender: FDA-Public Use
  Company Number: US-PFIZER INC-2019333915

PATIENT
  Age: 26 Year
  Sex: Female
  Weight: 61.23 kg

DRUGS (1)
  1. CABERGOLINE. [Suspect]
     Active Substance: CABERGOLINE
     Indication: PITUITARY TUMOUR BENIGN
     Dosage: UNK

REACTIONS (1)
  - Drug ineffective [Unknown]

NARRATIVE: CASE EVENT DATE: 2001
